FAERS Safety Report 4852500-8 (Version None)
Quarter: 2005Q4

REPORT INFORMATION
  Report Type: 
  Country: None (occurrence: None)
  Receive Date: 20051213
  Receipt Date: 20051128
  Transmission Date: 20060501
  Serious: Yes (Hospitalization)
  Sender: FDA-Public Use
  Company Number: US-BRISTOL-MYERS SQUIBB COMPANY-13197645

PATIENT
  Age: 17 Year
  Sex: Male

DRUGS (8)
  1. CETUXIMAB [Suspect]
     Indication: NEOPLASM
     Dates: start: 20051115, end: 20051115
  2. IRINOTECAN HCL [Suspect]
     Indication: NEOPLASM
     Route: 042
     Dates: start: 20051120, end: 20051120
  3. MEGACE [Concomitant]
     Dates: start: 20050201
  4. NEURONTIN [Concomitant]
     Dates: start: 20050201
  5. BACTRIM [Concomitant]
     Dates: start: 20050101
  6. PERCOCET [Concomitant]
     Dates: start: 20050101
  7. MIRALAX [Concomitant]
     Dates: start: 20050101
  8. PAXIL [Concomitant]
     Dates: start: 20050101

REACTIONS (21)
  - ABDOMINAL DISTENSION [None]
  - ABDOMINAL INFECTION [None]
  - COLITIS [None]
  - DEHYDRATION [None]
  - DIARRHOEA [None]
  - DYSPNOEA [None]
  - FATIGUE [None]
  - FEBRILE NEUTROPENIA [None]
  - HALLUCINATION [None]
  - HYPONATRAEMIA [None]
  - HYPOXIA [None]
  - ILEUS [None]
  - NAUSEA [None]
  - NECROSIS [None]
  - PAIN [None]
  - PLEURAL EFFUSION [None]
  - PNEUMONIA [None]
  - ROTAVIRUS TEST POSITIVE [None]
  - SKIN LESION [None]
  - TACHYCARDIA [None]
  - VOMITING [None]
